FAERS Safety Report 10070013 (Version 3)
Quarter: 2014Q2

REPORT INFORMATION
  Report Type: Report from Study
  Country: JP (occurrence: JP)
  Receive Date: 20140410
  Receipt Date: 20140617
  Transmission Date: 20141212
  Serious: Yes (Hospitalization)
  Sender: FDA-Public Use
  Company Number: JP-AMGEN-JPNCT2014025554

PATIENT
  Age: 61 Year
  Sex: Female
  Weight: 42 kg

DRUGS (16)
  1. DARBEPOETIN ALFA [Suspect]
     Indication: NEPHROGENIC ANAEMIA
     Dosage: 180 MUG, Q4WK
     Route: 058
     Dates: start: 20110131, end: 20130304
  2. CONIEL [Concomitant]
     Dosage: UNK
     Route: 048
  3. OLMETEC [Concomitant]
     Dosage: UNK
     Route: 048
  4. ALLOPURINOL [Concomitant]
     Dosage: UNK
     Route: 048
  5. SODIUM BICARBONATE [Concomitant]
     Dosage: UNK
     Route: 048
  6. KREMEZIN [Concomitant]
     Dosage: UNK
     Route: 048
  7. CARBADOGEN [Concomitant]
     Dosage: UNK
     Route: 048
  8. KALIMATE [Concomitant]
     Dosage: UNK
     Route: 048
  9. FERROMIA [Concomitant]
     Dosage: UNK
     Route: 048
  10. FEBURIC [Concomitant]
     Dosage: UNK
     Route: 048
  11. ALDOMET                            /00000101/ [Concomitant]
     Dosage: UNK
     Route: 048
  12. GASMOTIN [Concomitant]
     Dosage: UNK
     Route: 048
  13. PURSENNID                          /00142207/ [Concomitant]
     Dosage: UNK
     Route: 048
  14. ARGAMATE [Concomitant]
     Dosage: UNK
     Route: 048
  15. FLUITRAN [Concomitant]
     Dosage: UNK
     Route: 048
  16. RASILEZ [Concomitant]
     Dosage: UNK
     Route: 048

REACTIONS (1)
  - Cardiac failure [Recovering/Resolving]
